FAERS Safety Report 16930590 (Version 1)
Quarter: 2019Q4

REPORT INFORMATION
  Report Type: Report from Study
  Country: None (occurrence: RO)
  Receive Date: 20191017
  Receipt Date: 20191017
  Transmission Date: 20200122
  Serious: Yes (Hospitalization)
  Sender: FDA-Public Use
  Company Number: RO-ABBVIE-19K-135-2967296-00

PATIENT
  Sex: Male

DRUGS (2)
  1. HUMIRA [Suspect]
     Active Substance: ADALIMUMAB
     Indication: PSORIASIS
     Route: 058
     Dates: start: 20140604, end: 20181215
  2. SPIRULINA [Concomitant]
     Active Substance: SPIRULINA
     Indication: IMMUNE SYSTEM DISORDER
     Route: 048

REACTIONS (1)
  - Liver disorder [Not Recovered/Not Resolved]
